FAERS Safety Report 18129810 (Version 1)
Quarter: 2020Q3

REPORT INFORMATION
  Report Type: Spontaneous
  Country: US (occurrence: US)
  Receive Date: 20200810
  Receipt Date: 20200810
  Transmission Date: 20201103
  Serious: No
  Sender: FDA-Public Use
  Company Number: US-PERRIGO-20US002649

PATIENT
  Age: 19 Year
  Sex: Female
  Weight: 48.53 kg

DRUGS (3)
  1. LORATADINE. [Suspect]
     Active Substance: LORATADINE
     Indication: SEASONAL ALLERGY
     Dosage: 10 MG, QD
     Route: 048
     Dates: start: 20200208, end: 20200211
  2. ALEVE [Concomitant]
     Active Substance: NAPROXEN SODIUM
     Indication: HEADACHE
     Dosage: PRN
     Route: 048
  3. HEPATITIS B VACCINE [Concomitant]
     Active Substance: HEPATITIS B VIRUS VACCINE
     Indication: IMMUNISATION
     Dosage: UNK
     Route: 065
     Dates: start: 20200210, end: 20200210

REACTIONS (1)
  - Dehydration [Not Recovered/Not Resolved]

NARRATIVE: CASE EVENT DATE: 20200211
